FAERS Safety Report 16184581 (Version 3)
Quarter: 2020Q1

REPORT INFORMATION
  Report Type: Report from Study
  Country: FR (occurrence: FR)
  Receive Date: 20190411
  Receipt Date: 20200312
  Transmission Date: 20200409
  Serious: Yes (Hospitalization, Other)
  Sender: FDA-Public Use
  Company Number: FR-BAUSCH-BL-2019-009847

PATIENT
  Age: 60 Year
  Sex: Male
  Weight: 62 kg

DRUGS (7)
  1. STELARA [Suspect]
     Active Substance: USTEKINUMAB
     Indication: PSORIASIS
     Route: 058
     Dates: start: 20180220, end: 2018
  2. KYNTHEUM [Suspect]
     Active Substance: BRODALUMAB
     Indication: PRODUCT USED FOR UNKNOWN INDICATION
     Route: 065
  3. STELARA [Suspect]
     Active Substance: USTEKINUMAB
     Route: 065
     Dates: start: 20180320, end: 20181105
  4. NERISONE [Concomitant]
     Active Substance: DIFLUCORTOLONE VALERATE
     Indication: PSORIASIS
     Route: 065
     Dates: end: 20190311
  5. OFLOCET [Concomitant]
     Active Substance: OFLOXACIN
     Indication: INFECTION
     Route: 065
     Dates: start: 20190307, end: 20190311
  6. TREMFYA [Concomitant]
     Active Substance: GUSELKUMAB
     Indication: PRODUCT USED FOR UNKNOWN INDICATION
     Route: 003
     Dates: start: 20190311
  7. METHOTREXATE. [Concomitant]
     Active Substance: METHOTREXATE
     Indication: PSORIASIS
     Route: 048
     Dates: start: 201306, end: 20180220

REACTIONS (3)
  - Urinary tract infection staphylococcal [Recovering/Resolving]
  - Balanoposthitis [Recovering/Resolving]
  - Prostatectomy [Recovered/Resolved with Sequelae]

NARRATIVE: CASE EVENT DATE: 20181217
